FAERS Safety Report 21766564 (Version 1)
Quarter: 2022Q4

REPORT INFORMATION
  Report Type: Report from Study
  Country: FR (occurrence: FR)
  Receive Date: 20221222
  Receipt Date: 20221222
  Transmission Date: 20230113
  Serious: Yes (Death, Other)
  Sender: FDA-Public Use
  Company Number: FR-PFIZER INC-202201369483

PATIENT

DRUGS (3)
  1. BEVACIZUMAB [Suspect]
     Active Substance: BEVACIZUMAB
     Indication: Glioblastoma
     Dosage: 10 MG/KG, CYCLIC, ADMINISTERED BY INFUSION EVERY TWO WEEKS
     Route: 042
  2. FOTEMUSTINE [Suspect]
     Active Substance: FOTEMUSTINE
     Indication: Glioblastoma
     Dosage: 80 MG/M2, CYCLIC, EVERY TWO WEEKS FOR SIX WEEKS
     Route: 042
  3. FOTEMUSTINE [Suspect]
     Active Substance: FOTEMUSTINE
     Dosage: 80 MG/M2, CYCLIC EVERY FOUR WEEKS, MAINTENANCE PHASE
     Route: 042

REACTIONS (1)
  - Skin necrosis [Fatal]
